FAERS Safety Report 6916600-0 (Version None)
Quarter: 2010Q3

REPORT INFORMATION
  Report Type: 
  Country: None (occurrence: None)
  Receive Date: 20100809
  Receipt Date: 20100809
  Transmission Date: 20110219
  Serious: No
  Sender: FDA-Public Use
  Company Number: None

PATIENT
  Sex: Female
  Weight: 68.9467 kg

DRUGS (3)
  1. NUVIGIL [Suspect]
     Indication: DEPRESSION
     Dosage: ONE TABLET ONCE DAILY PO
     Route: 048
     Dates: start: 20090901, end: 20100701
  2. NUVIGIL [Suspect]
     Indication: DISTURBANCE IN ATTENTION
     Dosage: ONE TABLET ONCE DAILY PO
     Route: 048
     Dates: start: 20090901, end: 20100701
  3. NUVIGIL [Suspect]
     Indication: SOMNOLENCE
     Dosage: ONE TABLET ONCE DAILY PO
     Route: 048
     Dates: start: 20090901, end: 20100701

REACTIONS (5)
  - ABDOMINAL DISTENSION [None]
  - ARTHRITIS [None]
  - DYSSTASIA [None]
  - PAIN IN EXTREMITY [None]
  - WEIGHT INCREASED [None]
